FAERS Safety Report 14720702 (Version 1)
Quarter: 2018Q2

REPORT INFORMATION
  Report Type: Spontaneous
  Country: DE (occurrence: DE)
  Receive Date: 20180405
  Receipt Date: 20180405
  Transmission Date: 20180711
  Serious: Yes (Congenital Anomaly, Other)
  Sender: FDA-Public Use
  Company Number: DE-MYLANLABS-2018M1021079

PATIENT
  Sex: Male
  Weight: 4.2 kg

DRUGS (4)
  1. QUETIAPINE. [Suspect]
     Active Substance: QUETIAPINE
     Indication: DEPRESSION
     Dosage: 300 MG, QD
     Route: 064
     Dates: start: 2009
  2. QUETIAPINE. [Suspect]
     Active Substance: QUETIAPINE
     Dosage: 150 MG, QD, SLOW REDUCTION: AT WK 13 4/7 ALREADY 150 MG/D,AT WEEK 2
     Route: 064
  3. L-THYROXIN                         /00068002/ [Concomitant]
     Indication: HYPOTHYROIDISM
     Dosage: 75 ?G, QD, 75 [?G/D ]
     Route: 064
     Dates: start: 20160915, end: 20170321
  4. ELEVIT                             /01730301/ [Concomitant]
     Active Substance: FOLIC ACID\IRON\MINERALS\VITAMINS
     Indication: PROPHYLAXIS OF NEURAL TUBE DEFECT
     Dosage: UNK
     Route: 064

REACTIONS (2)
  - Foetal exposure during pregnancy [Unknown]
  - Cryptorchism [Recovered/Resolved with Sequelae]
